FAERS Safety Report 17974663 (Version 1)
Quarter: 2020Q3

REPORT INFORMATION
  Report Type: Spontaneous
  Country: US (occurrence: US)
  Receive Date: 20200702
  Receipt Date: 20200702
  Transmission Date: 20201103
  Serious: No
  Sender: FDA-Public Use
  Company Number: US-AMNEAL PHARMACEUTICALS-2020-AMRX-01506

PATIENT
  Sex: Female

DRUGS (1)
  1. ELURYNG [Suspect]
     Active Substance: ETHINYL ESTRADIOL\ETONOGESTREL
     Indication: PRODUCT USED FOR UNKNOWN INDICATION
     Dosage: 1 DOSAGE FORM, EVERY 3 WEEKS
     Route: 067
     Dates: start: 20200112

REACTIONS (6)
  - Gastric disorder [Unknown]
  - Vaginal haemorrhage [Unknown]
  - Fatigue [Unknown]
  - Uterine spasm [Unknown]
  - Mood swings [Unknown]
  - Decreased interest [Unknown]

NARRATIVE: CASE EVENT DATE: 2020
